FAERS Safety Report 7324149-9 (Version None)
Quarter: 2011Q1

REPORT INFORMATION
  Report Type: 
  Country: None (occurrence: None)
  Receive Date: 20110201
  Receipt Date: 20101022
  Transmission Date: 20110831
  Serious: Yes (Other)
  Sender: FDA-Public Use
  Company Number: AMAG201000386

PATIENT
  Age: 56 Year
  Sex: Female
  Weight: 80.8 kg

DRUGS (13)
  1. LISINOPRIL (LISINOPRIL DIHYDRATE) [Concomitant]
  2. SIMVASTATIN [Concomitant]
  3. ASPIRIN [Concomitant]
  4. ACTOS [Concomitant]
  5. TRAMADOL HCL [Concomitant]
  6. ERGOCALCIFEROL [Concomitant]
  7. CALCIUM CARBONATE [Concomitant]
  8. METFORMIN HCL [Concomitant]
  9. DOCUSATE (DOCUSATE) [Concomitant]
  10. FERAHEME [Suspect]
     Indication: IRON DEFICIENCY ANAEMIA
     Dosage: 510 MG, SINGLE, INTRAVENOUS, 510 MG, SINGLE, INTRAVENOUS
     Route: 042
     Dates: start: 20101015, end: 20101015
  11. FERAHEME [Suspect]
     Indication: ANAEMIA OF CHRONIC DISEASE
     Dosage: 510 MG, SINGLE, INTRAVENOUS, 510 MG, SINGLE, INTRAVENOUS
     Route: 042
     Dates: start: 20101015, end: 20101015
  12. FERAHEME [Suspect]
     Indication: IRON DEFICIENCY ANAEMIA
     Dosage: 510 MG, SINGLE, INTRAVENOUS, 510 MG, SINGLE, INTRAVENOUS
     Route: 042
     Dates: start: 20101011, end: 20101011
  13. FERAHEME [Suspect]
     Indication: ANAEMIA OF CHRONIC DISEASE
     Dosage: 510 MG, SINGLE, INTRAVENOUS, 510 MG, SINGLE, INTRAVENOUS
     Route: 042
     Dates: start: 20101011, end: 20101011

REACTIONS (3)
  - HYPERTENSION [None]
  - DIZZINESS [None]
  - FLUSHING [None]
